FAERS Safety Report 24098232 (Version 2)
Quarter: 2024Q3

REPORT INFORMATION
  Report Type: Spontaneous
  Country: CN (occurrence: CN)
  Receive Date: 20240716
  Receipt Date: 20240723
  Transmission Date: 20241016
  Serious: Yes (Life-Threatening, Hospitalization, Other)
  Sender: PFIZER
  Company Number: CN-MLMSERVICE-20240704-PI122821-00255-1

PATIENT
  Age: 68 Year
  Sex: Male

DRUGS (5)
  1. PACLITAXEL [Suspect]
     Active Substance: PACLITAXEL
     Indication: Lung squamous cell carcinoma stage III
     Dosage: 240 MG, CYCLIC, INFUSION
     Dates: start: 20210827, end: 20211011
  2. SINTILIMAB [Suspect]
     Active Substance: SINTILIMAB
     Indication: Lung squamous cell carcinoma stage III
     Dosage: 200 MG, CYCLIC, INFUSION
     Dates: start: 20210827
  3. SINTILIMAB [Suspect]
     Active Substance: SINTILIMAB
     Dosage: 200 MG, CYCLIC, SECOND DOSE OF SINTILIMAB
     Dates: start: 20210925, end: 20211011
  4. CARBOPLATIN [Suspect]
     Active Substance: CARBOPLATIN
     Indication: Lung squamous cell carcinoma stage III
     Dosage: 0.45 G, CYCLIC, INFUSION, 3 CYCLES
     Dates: start: 20210827, end: 20211011
  5. EDOXABAN TOSYLATE [Concomitant]
     Active Substance: EDOXABAN TOSYLATE
     Indication: Anticoagulant therapy
     Dosage: 30 MG, 1X/DAY
     Route: 048
     Dates: start: 20210925

REACTIONS (5)
  - Neutropenia [Recovered/Resolved]
  - Corynebacterium infection [Unknown]
  - Staphylococcal infection [Unknown]
  - Cytomegalovirus test positive [Unknown]
  - Sepsis [Unknown]

NARRATIVE: CASE EVENT DATE: 20210831
